FAERS Safety Report 22346301 (Version 1)
Quarter: 2023Q2

REPORT INFORMATION
  Report Type: Other
  Country: CN (occurrence: CN)
  Receive Date: 20230519
  Receipt Date: 20230519
  Transmission Date: 20230722
  Serious: Yes (Other)
  Sender: FDA-Public Use
  Company Number: CN-PFIZER INC-202201241244

PATIENT
  Age: 59 Year
  Sex: Female

DRUGS (10)
  1. AYVAKIT [Suspect]
     Active Substance: AVAPRITINIB
     Indication: Gastrointestinal stromal tumour
     Dosage: 150 MG/D
     Route: 065
     Dates: start: 2021, end: 20220112
  2. AYVAKIT [Suspect]
     Active Substance: AVAPRITINIB
     Dosage: 100 MG/D
     Route: 065
     Dates: start: 20220112, end: 2022
  3. AYVAKIT [Suspect]
     Active Substance: AVAPRITINIB
     Dosage: 300 MG/D
     Route: 065
     Dates: start: 20211012, end: 2021
  4. AYVAKIT [Suspect]
     Active Substance: AVAPRITINIB
     Dosage: 100 MG/D
     Route: 065
     Dates: start: 2022, end: 2022
  5. AYVAKIT [Suspect]
     Active Substance: AVAPRITINIB
     Dosage: 100 MG/D, USUALLY IN A WAY OF 10 DAYS ON WITH 1-2 DAYS OFF WITHOUT ALTERING DOSAGE
     Route: 065
     Dates: start: 2022
  6. SUNITINIB MALATE [Suspect]
     Active Substance: SUNITINIB MALATE
     Indication: Gastrointestinal stromal tumour
     Dosage: 37.5 MG/D CONTINUOUS DAILY DOSE
     Route: 065
     Dates: start: 20220112, end: 2022
  7. SUNITINIB MALATE [Suspect]
     Active Substance: SUNITINIB MALATE
     Dosage: 37.5 MG/D, USUALLY IN A WAY OF 10 DAYS ON WITH 1-2 DAYS OFF WITHOUT ALTERING DOSAGE
     Route: 065
     Dates: start: 2022
  8. SUNITINIB MALATE [Suspect]
     Active Substance: SUNITINIB MALATE
     Dosage: 37.5 MG/D CONTINUOUS DAILY DOSE
     Route: 065
     Dates: start: 2022, end: 2022
  9. RIPRETINIB [Concomitant]
     Active Substance: RIPRETINIB
     Indication: Gastrointestinal stromal tumour
     Dosage: 150 MG/D
     Route: 065
     Dates: start: 20210810, end: 2021
  10. RIPRETINIB [Concomitant]
     Active Substance: RIPRETINIB
     Dosage: 100 MG/D
     Route: 065
     Dates: start: 2021, end: 20220112

REACTIONS (14)
  - Leukopenia [Unknown]
  - Palmar-plantar erythrodysaesthesia syndrome [Recovering/Resolving]
  - Diarrhoea [Unknown]
  - Oedema peripheral [Unknown]
  - Face oedema [Recovering/Resolving]
  - Disease progression [Unknown]
  - Palmar-plantar erythrodysaesthesia syndrome [Recovering/Resolving]
  - Alopecia [Unknown]
  - Pyrexia [Unknown]
  - Gingival bleeding [Unknown]
  - Neoplasm progression [Unknown]
  - Disease recurrence [Unknown]
  - Drug ineffective [Unknown]
  - Off label use [Unknown]

NARRATIVE: CASE EVENT DATE: 20220101
